FAERS Safety Report 8229442-3 (Version None)
Quarter: 2012Q1

REPORT INFORMATION
  Report Type: 
  Country: None (occurrence: None)
  Receive Date: 20120322
  Receipt Date: 20120314
  Transmission Date: 20120608
  Serious: Yes (Hospitalization)
  Sender: FDA-Public Use
  Company Number: DE-ROCHE-1037074

PATIENT
  Age: 62 Year
  Sex: Male
  Weight: 62 kg

DRUGS (10)
  1. VEMURAFENIB [Suspect]
     Indication: MALIGNANT MELANOMA
     Dosage: LAST DATE PRIOR TO SAE ON 29 JAN 2012
     Route: 048
     Dates: start: 20120125
  2. FORMOTEROL FUMARATE [Suspect]
     Indication: MALIGNANT MELANOMA
     Dates: start: 20091001, end: 20120130
  3. TIOTROPIUM BROMIDE [Suspect]
     Indication: MALIGNANT MELANOMA
     Dates: start: 20091001, end: 20120130
  4. THEOPHYLLINE [Suspect]
     Dates: start: 20120131
  5. FORMOTEROL FUMARATE [Suspect]
     Dates: start: 20120131
  6. TIOTROPIUM BROMIDE [Suspect]
     Dates: start: 20120131
  7. VEMURAFENIB [Suspect]
     Dosage: LAST DOSE PRIOR TO SAE ON 24/FEB/2012
     Route: 048
     Dates: start: 20120207
  8. BUDESONIDE [Suspect]
     Indication: MALIGNANT MELANOMA
     Dates: start: 20091001, end: 20120130
  9. THEOPHYLLINE [Suspect]
     Indication: MALIGNANT MELANOMA
     Dates: start: 20091001, end: 20120130
  10. BUDESONIDE [Suspect]
     Dates: start: 20120131

REACTIONS (1)
  - DYSPNOEA [None]
